FAERS Safety Report 10249512 (Version 1)
Quarter: 2014Q2

REPORT INFORMATION
  Report Type: Spontaneous
  Country: US (occurrence: US)
  Receive Date: 20140620
  Receipt Date: 20140620
  Transmission Date: 20141212
  Serious: Yes (Disabling, Other)
  Sender: FDA-Public Use
  Company Number: US-SA-2014SA077972

PATIENT
  Sex: Female

DRUGS (1)
  1. DEMEROL [Suspect]
     Indication: PAIN
     Route: 065

REACTIONS (5)
  - Bedridden [Unknown]
  - Spinal disorder [Unknown]
  - Neoplasm malignant [Unknown]
  - Brain stem syndrome [Unknown]
  - Somnolence [Unknown]
